FAERS Safety Report 16021544 (Version 1)
Quarter: 2019Q1

REPORT INFORMATION
  Report Type: Spontaneous
  Country: GB (occurrence: GB)
  Receive Date: 20190301
  Receipt Date: 20190301
  Transmission Date: 20190418
  Serious: Yes (Hospitalization, Other)
  Sender: FDA-Public Use
  Company Number: GB-IBIGEN-2019.05965

PATIENT
  Age: 56 Year
  Sex: Female

DRUGS (2)
  1. PIPERACILLIN AND TAZOBACTAM [Suspect]
     Active Substance: PIPERACILLIN SODIUM\TAZOBACTAM SODIUM
     Indication: EVIDENCE BASED TREATMENT
  2. METFORMIN [Concomitant]
     Active Substance: METFORMIN HYDROCHLORIDE
     Indication: DIABETES MELLITUS

REACTIONS (9)
  - Pyrexia [Unknown]
  - Cough [Unknown]
  - C-reactive protein increased [Unknown]
  - Dyspnoea [Unknown]
  - Condition aggravated [Unknown]
  - Malaise [Unknown]
  - Candida test positive [Unknown]
  - Drug ineffective [Unknown]
  - Acute respiratory distress syndrome [Unknown]
